FAERS Safety Report 7689409-0 (Version None)
Quarter: 2011Q3

REPORT INFORMATION
  Report Type: 
  Country: None (occurrence: None)
  Receive Date: 20110817
  Receipt Date: 20110809
  Transmission Date: 20111222
  Serious: Yes (Hospitalization, Other)
  Sender: FDA-Public Use
  Company Number: PHHY2011CA55016

PATIENT
  Sex: Male

DRUGS (1)
  1. SANDOSTATIN LAR [Suspect]
     Indication: VIPOMA
     Dosage: 60 MG, EVERY 4 WEEKS
     Route: 030
     Dates: start: 20100823

REACTIONS (2)
  - TERMINAL STATE [None]
  - HAEMOGLOBIN DECREASED [None]
